FAERS Safety Report 18264878 (Version 3)
Quarter: 2020Q4

REPORT INFORMATION
  Report Type: Spontaneous
  Country: US (occurrence: US)
  Receive Date: 20200914
  Receipt Date: 20201006
  Transmission Date: 20210113
  Serious: Yes (Hospitalization, Other)
  Sender: FDA-Public Use
  Company Number: US-PFIZER INC-2020349315

PATIENT
  Age: 75 Year
  Sex: Male
  Weight: 81.65 kg

DRUGS (11)
  1. KEYTRUDA [Suspect]
     Active Substance: PEMBROLIZUMAB
     Indication: RENAL CANCER METASTATIC
     Dosage: 200 MG EVERY 3 WEEKS
     Route: 042
     Dates: start: 20200608, end: 20200629
  2. ONDANSETRON [Concomitant]
     Active Substance: ONDANSETRON
     Dosage: 4 MG, EVERY6 HOURS AS NEEDED
  3. ATORVASTATIN CALCIUM. [Concomitant]
     Active Substance: ATORVASTATIN CALCIUM
     Dosage: 40 MG, EVERY DAY
  4. LEVOTHYROXINE [LEVOTHYROXINE SODIUM] [Concomitant]
     Active Substance: LEVOTHYROXINE SODIUM
     Dosage: 25 UG, DAILY
  5. MIRALAX [Concomitant]
     Active Substance: POLYETHYLENE GLYCOL 3350
     Dosage: UNK, AS NEEDED
  6. INLYTA [Suspect]
     Active Substance: AXITINIB
     Indication: RENAL CANCER METASTATIC
     Dosage: 5 MG, 2X/DAY, (ONCE IN MORNING AND ONCE AT NIGHT)
     Route: 048
     Dates: start: 202006, end: 2020
  7. OXYCODONE [Concomitant]
     Active Substance: OXYCODONE
     Dosage: 5/325, EVERY 6 HOURS AS NEEDED
  8. CIALIS [Concomitant]
     Active Substance: TADALAFIL
     Dosage: 20 MG, EVERY DAY, AS NEEDED
  9. INLYTA [Suspect]
     Active Substance: AXITINIB
     Dosage: 5 MG, 2X/DAY, (ONCE IN MORNING AND ONCE AT NIGHT)
     Route: 048
     Dates: start: 20200824
  10. BENICAR [Concomitant]
     Active Substance: OLMESARTAN MEDOXOMIL
     Dosage: 20 MG, EVERY DAY
  11. GABAPENTIN. [Concomitant]
     Active Substance: GABAPENTIN
     Dosage: 300 MG, EVERY DAY

REACTIONS (2)
  - Myasthenia gravis [Recovering/Resolving]
  - Dysphagia [Not Recovered/Not Resolved]

NARRATIVE: CASE EVENT DATE: 202007
